FAERS Safety Report 19206770 (Version 2)
Quarter: 2021Q2

REPORT INFORMATION
  Report Type: Spontaneous
  Country: US (occurrence: US)
  Receive Date: 20210430
  Receipt Date: 20210524
  Transmission Date: 20210717
  Serious: Yes (Other)
  Sender: FDA-Public Use
  Company Number: US-SUNOVION-2021SUN001639

PATIENT
  Age: 35 Year
  Sex: Female

DRUGS (1)
  1. LURASIDONE HYDROCHLORIDE. [Suspect]
     Active Substance: LURASIDONE HYDROCHLORIDE
     Indication: SCHIZOPHRENIA
     Dosage: 80 MG, QD
     Route: 048

REACTIONS (4)
  - Hallucination, auditory [Recovering/Resolving]
  - Skin burning sensation [Recovering/Resolving]
  - Paraesthesia [Unknown]
  - Pain of skin [Unknown]
